FAERS Safety Report 6643930-2 (Version None)
Quarter: 2010Q1

REPORT INFORMATION
  Report Type: 
  Country: None (occurrence: None)
  Receive Date: 20100322
  Receipt Date: 20100318
  Transmission Date: 20100710
  Serious: Yes (Life-Threatening, Hospitalization)
  Sender: FDA-Public Use
  Company Number: GB-PERRIGO-10GB007948

PATIENT
  Age: 60 Year
  Sex: Male
  Weight: 71.5 kg

DRUGS (3)
  1. NAPROXEN SODIUM 12063/0055 500 MG [Suspect]
     Indication: GOUT
     Dosage: 500 MG, BID
     Route: 048
     Dates: start: 20090501, end: 20091012
  2. ALLOPURINOL [Concomitant]
     Indication: GOUT
     Dosage: 300 MG, QD
     Route: 048
  3. CO-DYDRAMOL [Concomitant]
     Indication: DRUG USE FOR UNKNOWN INDICATION
     Dosage: AS NECESSARY
     Route: 048

REACTIONS (6)
  - ABDOMINAL PAIN UPPER [None]
  - DUODENAL ULCER HAEMORRHAGE [None]
  - HAEMOGLOBIN DECREASED [None]
  - MELAENA [None]
  - PALLOR [None]
  - TACHYCARDIA [None]
